FAERS Safety Report 14798329 (Version 1)
Quarter: 2018Q2

REPORT INFORMATION
  Report Type: Spontaneous
  Country: US (occurrence: US)
  Receive Date: 20180424
  Receipt Date: 20180424
  Transmission Date: 20180711
  Serious: No
  Sender: FDA-Public Use
  Company Number: US-PFIZER INC-2018160772

PATIENT
  Age: 60 Year
  Sex: Female

DRUGS (1)
  1. METHOTREXATE SODIUM. [Suspect]
     Active Substance: METHOTREXATE SODIUM
     Dosage: UNK, WEEKLY (25MG/ML)

REACTIONS (12)
  - Cataract subcapsular [Unknown]
  - Fatigue [Unknown]
  - Weight increased [Unknown]
  - Musculoskeletal pain [Unknown]
  - Joint swelling [Unknown]
  - Arthralgia [Unknown]
  - Musculoskeletal stiffness [Unknown]
  - Decreased appetite [Unknown]
  - Product use issue [Unknown]
  - Weight decreased [Unknown]
  - Pain in extremity [Unknown]
  - Peripheral swelling [Unknown]
